FAERS Safety Report 6557858-X (Version None)
Quarter: 2010Q1

REPORT INFORMATION
  Report Type: 
  Country: None (occurrence: None)
  Receive Date: 20100128
  Receipt Date: 20100128
  Transmission Date: 20100710
  Serious: Yes (Life-Threatening, Hospitalization)
  Sender: FDA-Public Use
  Company Number: None

PATIENT
  Age: 51 Year
  Sex: Male

DRUGS (7)
  1. CATAPRESS TRANSDERMAL PATCHES [Suspect]
     Dosage: 1 EVERY SEVEN DAYS
     Route: 062
  2. TOPRAL [Concomitant]
  3. ENLAPRIL [Concomitant]
  4. MAXZIDE [Concomitant]
  5. LAVAZE [Concomitant]
  6. PREVACHOL [Concomitant]
  7. ALMINPINE [Concomitant]

REACTIONS (3)
  - MALAISE [None]
  - PRODUCT ADHESION ISSUE [None]
  - PRODUCT SUBSTITUTION ISSUE [None]
